FAERS Safety Report 7853822-9 (Version None)
Quarter: 2011Q4

REPORT INFORMATION
  Report Type: 
  Country: None (occurrence: None)
  Receive Date: 20111026
  Receipt Date: 20111021
  Transmission Date: 20120403
  Serious: Yes (Other)
  Sender: FDA-Public Use
  Company Number: CA-PFIZER INC-2011236557

PATIENT
  Age: 60 Year
  Sex: Male
  Weight: 79.365 kg

DRUGS (5)
  1. VARENICLINE TARTRATE [Suspect]
     Dosage: TWICE PER DAY
  2. VARENICLINE TARTRATE [Suspect]
     Indication: SMOKING CESSATION THERAPY
     Dosage: ONCE PER DAY
  3. REBIF [Concomitant]
     Indication: MULTIPLE SCLEROSIS
     Dosage: 2 MCG/0.5 ML, THREE TIMES PER WEEK
     Dates: start: 20010101
  4. BACLOFEN [Concomitant]
     Indication: MULTIPLE SCLEROSIS
     Dosage: 10 MG, UNK
     Dates: start: 20010101
  5. ATIVAN [Concomitant]
     Indication: MULTIPLE SCLEROSIS
     Dosage: 1 MG, UNK
     Dates: start: 20010101

REACTIONS (2)
  - URINE OUTPUT DECREASED [None]
  - BACK PAIN [None]
